FAERS Safety Report 5090886-2 (Version None)
Quarter: 2006Q3

REPORT INFORMATION
  Report Type: 
  Country: None (occurrence: None)
  Receive Date: 20060823
  Receipt Date: 20060808
  Transmission Date: 20061208
  Serious: Yes (Hospitalization)
  Sender: FDA-Public Use
  Company Number: WAES 0608CAN00060

PATIENT
  Age: 70 Year
  Sex: Female

DRUGS (11)
  1. ZETIA [Suspect]
     Dosage: 10 MG/DAILY PO
     Route: 048
  2. TAB INVESTIGATIONAL DRUG (UNSPECIFIED) [Suspect]
     Indication: PERCUTANEOUS CORONARY INTERVENTION
     Dosage: 40 MG/DAILY PO
     Route: 048
     Dates: start: 20060808, end: 20060808
  3. ASPIRIN [Concomitant]
  4. ATORVASTATIN CALCIUM [Concomitant]
  5. BIVALIRUDIN [Concomitant]
  6. CLOPIDOGREL BISULFATE [Concomitant]
  7. DIAZEPAM [Concomitant]
  8. METOPROLOL TARTRATE [Concomitant]
  9. NITROGLYCEIRN [Concomitant]
  10. PROMETHAZINE [Concomitant]
  11. SERTRALINE HCL [Concomitant]

REACTIONS (1)
  - PERICARDIAL HAEMORRHAGE [None]
